FAERS Safety Report 25427329 (Version 1)
Quarter: 2025Q2

REPORT INFORMATION
  Report Type: Spontaneous
  Country: US (occurrence: US)
  Receive Date: 20250612
  Receipt Date: 20250612
  Transmission Date: 20250717
  Serious: Yes (Other)
  Sender: AMGEN
  Company Number: US-AMGEN-USASP2025110814

PATIENT
  Sex: Male

DRUGS (2)
  1. OTEZLA [Suspect]
     Active Substance: APREMILAST
     Indication: Psoriasis
     Dosage: 30 MILLIGRAM, BID
     Route: 048
  2. OTEZLA [Suspect]
     Active Substance: APREMILAST
     Dosage: 30 MILLIGRAM, BID
     Route: 048
     Dates: start: 20250604

REACTIONS (9)
  - Brain neoplasm [Unknown]
  - Squamous cell carcinoma of the parotid gland [Unknown]
  - Skin cancer [Unknown]
  - Lymphoma [Unknown]
  - Therapy interrupted [Unknown]
  - Milk allergy [Unknown]
  - Food allergy [Unknown]
  - Psoriasis [Unknown]
  - Diarrhoea [Unknown]
